FAERS Safety Report 20617888 (Version 1)
Quarter: 2022Q1

REPORT INFORMATION
  Report Type: Spontaneous
  Country: PT (occurrence: None)
  Receive Date: 20220321
  Receipt Date: 20220321
  Transmission Date: 20220423
  Serious: Yes (Life-Threatening, Hospitalization)
  Sender: FDA-Public Use
  Company Number: 2022A114995

PATIENT
  Age: 67 Year
  Sex: Female

DRUGS (1)
  1. LYNPARZA [Suspect]
     Active Substance: OLAPARIB
     Dosage: 300 MG 2 ID
     Route: 048
     Dates: start: 20170517, end: 20210728

REACTIONS (1)
  - Acute leukaemia [Unknown]

NARRATIVE: CASE EVENT DATE: 20210729
